FAERS Safety Report 20072404 (Version 2)
Quarter: 2021Q4

REPORT INFORMATION
  Report Type: Spontaneous
  Country: PT (occurrence: None)
  Receive Date: 20211116
  Receipt Date: 20211123
  Transmission Date: 20220303
  Serious: Yes (Hospitalization, Other)
  Sender: FDA-Public Use
  Company Number: 2021A800389

PATIENT
  Age: 80 Year
  Sex: Male

DRUGS (2)
  1. OMEPRAZOLE [Suspect]
     Active Substance: OMEPRAZOLE
     Route: 048
  2. FUROSEMIDE [Suspect]
     Active Substance: FUROSEMIDE
     Route: 065

REACTIONS (7)
  - Hypomagnesaemia [Unknown]
  - Hyperparathyroidism secondary [Unknown]
  - Decreased appetite [Unknown]
  - Urine calcium decreased [Unknown]
  - Diverticulum [Unknown]
  - Intestinal obstruction [Unknown]
  - Hypocalcaemia [Unknown]
